FAERS Safety Report 6068411-9 (Version None)
Quarter: 2009Q1

REPORT INFORMATION
  Report Type: 
  Country: None (occurrence: None)
  Receive Date: 20090206
  Receipt Date: 20090203
  Transmission Date: 20090719
  Serious: Yes (Hospitalization)
  Sender: FDA-Public Use
  Company Number: PT-TEVA-184948ISR

PATIENT
  Sex: Female
  Weight: 60 kg

DRUGS (2)
  1. COPAXONE [Suspect]
     Indication: MULTIPLE SCLEROSIS
     Route: 058
     Dates: start: 20030301, end: 20090101
  2. TOPIRAMATE [Concomitant]
     Indication: TREMOR
     Route: 048
     Dates: end: 20090101

REACTIONS (4)
  - ALTERED STATE OF CONSCIOUSNESS [None]
  - CONVULSION [None]
  - HYPOTHERMIA [None]
  - PANCYTOPENIA [None]
